FAERS Safety Report 8793254 (Version 2)
Quarter: 2013Q1

REPORT INFORMATION
  Report Type: Spontaneous
  Country: FR (occurrence: FR)
  Receive Date: 20120917
  Receipt Date: 20130317
  Transmission Date: 20140127
  Serious: Yes (Hospitalization)
  Sender: FDA-Public Use
  Company Number: FR-TEVA-357863ISR

PATIENT
  Age: 64 None
  Sex: Female

DRUGS (6)
  1. NAXY 500 MG [Suspect]
     Indication: BRONCHITIS
     Dosage: 1000 MILLIGRAM DAILY;
     Route: 048
     Dates: start: 20071116, end: 20071122
  2. NAXY 500 MG [Suspect]
     Dosage: 1000 MILLIGRAM DAILY;
     Route: 048
     Dates: start: 201207, end: 201207
  3. MESTINON [Concomitant]
     Route: 048
  4. MESTINON [Concomitant]
     Dosage: ONE TO TWO TABLETS A DAY
     Dates: start: 2008, end: 201205
  5. MESTINON [Concomitant]
     Dates: start: 201208
  6. HORMONE REPLACEMENT THERAPY [Concomitant]
     Route: 065

REACTIONS (12)
  - Laryngeal dyspnoea [Recovered/Resolved]
  - Oral dysaesthesia [Recovered/Resolved]
  - Diplopia [Recovered/Resolved]
  - Myasthenia gravis [Recovered/Resolved]
  - Dysarthria [Recovered/Resolved]
  - Dysphagia [Recovered/Resolved]
  - Fatigue [Not Recovered/Not Resolved]
  - Muscle spasms [Unknown]
  - Muscular weakness [Unknown]
  - Ocular discomfort [Unknown]
  - Eyelid ptosis [Recovered/Resolved]
  - Anxiety [Unknown]
